FAERS Safety Report 17171321 (Version 1)
Quarter: 2019Q4

REPORT INFORMATION
  Report Type: Spontaneous
  Country: US (occurrence: US)
  Receive Date: 20191218
  Receipt Date: 20191218
  Transmission Date: 20200122
  Serious: No
  Sender: FDA-Public Use
  Company Number: US-SUPERNUS PHARMACEUTICALS, INC.-2019SUP00388

PATIENT
  Age: 60 Year
  Sex: Female
  Weight: 65.76 kg

DRUGS (9)
  1. TROKENDI XR [Suspect]
     Active Substance: TOPIRAMATE
     Indication: MIGRAINE
     Dosage: 25 MG, 1X/DAY, IN THE MORNING
     Route: 048
     Dates: start: 20190701, end: 20190707
  2. PANTOPRAZOLE [Concomitant]
     Active Substance: PANTOPRAZOLE
     Dosage: 40 MG, 1X/DAY (USUALLY ONLY TAKES EVERY 3-4 DAYS)
  3. LORAZEPAM. [Concomitant]
     Active Substance: LORAZEPAM
     Dosage: 0.5 MG, PRESCRIBED AS 3X/DAY, BUT USUALLY ONLY TAKES IT AT BEDTIME
  4. TROKENDI XR [Suspect]
     Active Substance: TOPIRAMATE
     Indication: MIGRAINE
     Dosage: 50 MG, 1X/DAY IN THE MORNING
     Route: 048
     Dates: start: 20190708, end: 20190710
  5. FISH OIL [Concomitant]
     Active Substance: FISH OIL
     Dosage: 2 CAPSULES, 1X/DAY
  6. MULTIVITAMIN WITH B12 AND VITAMIN D [Concomitant]
  7. VITAMIN FOR EYES [Concomitant]
  8. TROKENDI XR [Suspect]
     Active Substance: TOPIRAMATE
     Dosage: 50 MG, 1X/DAY IN THE EVENING
     Route: 048
     Dates: start: 20190716
  9. DULOXETINE. [Concomitant]
     Active Substance: DULOXETINE
     Dosage: 60 MG, 1X/DAY AT NIGHT

REACTIONS (10)
  - Drug titration error [Not Recovered/Not Resolved]
  - Diarrhoea [Recovered/Resolved]
  - Malaise [Recovered/Resolved]
  - Blood glucose decreased [Unknown]
  - Hypophagia [Recovered/Resolved]
  - Nausea [Recovered/Resolved]
  - Abdominal discomfort [Recovered/Resolved]
  - Retching [Recovered/Resolved]
  - Middle insomnia [Recovered/Resolved]
  - Somnolence [Not Recovered/Not Resolved]

NARRATIVE: CASE EVENT DATE: 201907
